FAERS Safety Report 8842172 (Version 1)
Quarter: 2012Q4

REPORT INFORMATION
  Report Type: 
  Country: IN (occurrence: IN)
  Receive Date: 20121016
  Receipt Date: 20121016
  Transmission Date: 20130627
  Serious: Yes (Hospitalization, Other)
  Sender: FDA-Public Use
  Company Number: PHHY2012IN091202

PATIENT
  Age: 69 Year
  Sex: Female

DRUGS (1)
  1. ACLASTA [Suspect]
     Indication: OSTEOPOROSIS
     Dosage: 5mg/100 ml
     Route: 042
     Dates: start: 20120929

REACTIONS (6)
  - Humerus fracture [Unknown]
  - Limb injury [Unknown]
  - Spinal fracture [Unknown]
  - Back injury [Unknown]
  - Accident [Unknown]
  - Dizziness [Unknown]
